FAERS Safety Report 19553042 (Version 1)
Quarter: 2021Q3

REPORT INFORMATION
  Report Type: Spontaneous
  Country: US (occurrence: US)
  Receive Date: 20210714
  Receipt Date: 20210714
  Transmission Date: 20211014
  Serious: No
  Sender: FDA-Public Use
  Company Number: US-SA-2021SA227232

PATIENT
  Sex: Male

DRUGS (4)
  1. DUPIXENT [Suspect]
     Active Substance: DUPILUMAB
     Indication: NASAL TURBINATE HYPERTROPHY
     Dosage: 300 MG / 2 ML
     Route: 058
     Dates: start: 201904
  2. DUPIXENT [Suspect]
     Active Substance: DUPILUMAB
     Indication: CHRONIC SINUSITIS
  3. DUPIXENT [Suspect]
     Active Substance: DUPILUMAB
     Indication: NASAL DISORDER
  4. DUPIXENT [Suspect]
     Active Substance: DUPILUMAB
     Indication: NASAL POLYPS

REACTIONS (2)
  - Product use in unapproved indication [Unknown]
  - Sinus disorder [Unknown]

NARRATIVE: CASE EVENT DATE: 201904
